FAERS Safety Report 7292650-2 (Version None)
Quarter: 2011Q1

REPORT INFORMATION
  Report Type: 
  Country: None (occurrence: None)
  Receive Date: 20110215
  Receipt Date: 20110131
  Transmission Date: 20110831
  Serious: Yes (Other)
  Sender: FDA-Public Use
  Company Number: BR-SANOFI-AVENTIS-2011SA007343

PATIENT
  Age: 30 Year
  Sex: Female
  Weight: 59 kg

DRUGS (2)
  1. DIGOXIN [Concomitant]
     Route: 048
     Dates: start: 20100920
  2. LASIX [Suspect]
     Indication: SWELLING
     Dosage: 0.5 TABLET/DAY.
     Route: 048
     Dates: start: 20100910

REACTIONS (5)
  - WEIGHT GAIN POOR [None]
  - WEIGHT DECREASED [None]
  - WRONG TECHNIQUE IN DRUG USAGE PROCESS [None]
  - ANAEMIA [None]
  - YELLOW SKIN [None]
